FAERS Safety Report 13841281 (Version 2)
Quarter: 2017Q4

REPORT INFORMATION
  Report Type: Spontaneous
  Country: FR (occurrence: FR)
  Receive Date: 20170807
  Receipt Date: 20171221
  Transmission Date: 20180320
  Serious: Yes (Death, Hospitalization, Other)
  Sender: FDA-Public Use
  Company Number: FR-009507513-1708FRA002972

PATIENT
  Age: 29 Year
  Sex: Female

DRUGS (7)
  1. LEPONEX [Concomitant]
     Active Substance: CLOZAPINE
     Indication: PSYCHOTIC DISORDER
     Dosage: UNK
     Route: 048
     Dates: start: 201602
  2. LOXAPAC (LOXAPINE SUCCINATE) [Concomitant]
     Active Substance: LOXAPINE SUCCINATE
     Dosage: UNK
     Route: 048
     Dates: start: 2009
  3. ANAFRANIL [Concomitant]
     Active Substance: CLOMIPRAMINE HYDROCHLORIDE
  4. NEXPLANON [Suspect]
     Active Substance: ETONOGESTREL
     Dosage: 1 IMPLANT, UNK, LEFT ARM
     Route: 059
     Dates: start: 20160530
  5. RISPERDAL [Concomitant]
     Active Substance: RISPERIDONE
     Route: 048
  6. POLYETHYLENE GLYCOL [Concomitant]
     Active Substance: POLYETHYLENE GLYCOLS
     Dosage: UNK
     Route: 048
     Dates: start: 2009
  7. AKINETON [Concomitant]
     Active Substance: BIPERIDEN HYDROCHLORIDE
     Dosage: UNK
     Route: 048
     Dates: start: 2009

REACTIONS (4)
  - Salivary hypersecretion [Unknown]
  - Malaise [Unknown]
  - Pulmonary embolism [Fatal]
  - Cardio-respiratory arrest [Unknown]

NARRATIVE: CASE EVENT DATE: 20170517
